FAERS Safety Report 8815647 (Version 3)
Quarter: 2013Q2

REPORT INFORMATION
  Report Type: Report from Study
  Country: US (occurrence: US)
  Receive Date: 20120928
  Receipt Date: 20130418
  Transmission Date: 20140414
  Serious: Yes (Other)
  Sender: FDA-Public Use
  Company Number: US-ACTELION-A-NJ2012-71875

PATIENT
  Age: 66 Year
  Sex: Male

DRUGS (2)
  1. TRACLEER [Suspect]
     Indication: PULMONARY ARTERIAL HYPERTENSION
     Dosage: UNK
     Route: 048
  2. PLAVIX [Concomitant]

REACTIONS (4)
  - Coronary arterial stent insertion [Unknown]
  - Dyspnoea [Unknown]
  - Asthenia [Unknown]
  - Local swelling [Unknown]
